FAERS Safety Report 5857162-9 (Version None)
Quarter: 2008Q3

REPORT INFORMATION
  Report Type: 
  Country: None (occurrence: None)
  Receive Date: 20080825
  Receipt Date: 20080822
  Transmission Date: 20090109
  Serious: Yes (Death, Other)
  Sender: FDA-Public Use
  Company Number: PHHY2008JP18942

PATIENT
  Sex: Male

DRUGS (2)
  1. ZOMETA [Suspect]
     Indication: METASTASES TO BONE
     Dosage: 4 MG
     Route: 042
     Dates: start: 20060501, end: 20070801
  2. AREDIA [Suspect]
     Indication: METASTASES TO BONE
     Dosage: 45 MG
     Route: 042
     Dates: start: 20041001, end: 20060401

REACTIONS (5)
  - BONE DISORDER [None]
  - BREAST CANCER [None]
  - DENTAL CLEANING [None]
  - MALIGNANT NEOPLASM PROGRESSION [None]
  - OSTEOMYELITIS [None]
